FAERS Safety Report 7414109-1 (Version None)
Quarter: 2011Q2

REPORT INFORMATION
  Report Type: 
  Country: None (occurrence: None)
  Receive Date: 20110411
  Receipt Date: 20110411
  Transmission Date: 20111010
  Serious: Yes (Life-Threatening, Hospitalization)
  Sender: FDA-Public Use
  Company Number: None

PATIENT
  Age: 36 Year
  Sex: Female
  Weight: 54.7 kg

DRUGS (15)
  1. HURRICAINE SPRAY -BENZOCAINE- 20% BENZOCAINE BEUTLICH [Suspect]
     Indication: DISCOMFORT
     Dosage: 1 SPRAY EVERY 4 HOURS PRN TOP
     Route: 061
  2. PEPCID [Concomitant]
  3. NICOTINE PATCH [Concomitant]
  4. ACETAMINOPHEN [Concomitant]
  5. DILAUDID [Concomitant]
  6. CEPASTAT [Concomitant]
  7. FLEXERIL [Concomitant]
  8. REGLAN [Concomitant]
  9. DULCOLAX [Concomitant]
  10. BENADRYL [Concomitant]
  11. LOVENOX [Concomitant]
  12. VALIUM [Concomitant]
  13. FLONASE [Concomitant]
  14. AMBIEN [Concomitant]
  15. ZOFRAN [Concomitant]

REACTIONS (3)
  - METHAEMOGLOBINAEMIA [None]
  - UNRESPONSIVE TO STIMULI [None]
  - CYANOSIS [None]
